FAERS Safety Report 6142304-0 (Version None)
Quarter: 2009Q2

REPORT INFORMATION
  Report Type: 
  Country: None (occurrence: None)
  Receive Date: 20090403
  Receipt Date: 20090325
  Transmission Date: 20091009
  Serious: Yes (Other)
  Sender: FDA-Public Use
  Company Number: JP-PFIZER INC-2009175313

PATIENT

DRUGS (7)
  1. SELARA [Suspect]
     Dosage: 50 MG, 1X/DAY
     Route: 048
     Dates: start: 20090203, end: 20090217
  2. OLMETEC [Concomitant]
     Dosage: UNK
     Route: 048
     Dates: start: 20070406
  3. LIVACT [Concomitant]
     Dosage: UNK
     Route: 048
     Dates: start: 20070406
  4. LACTULOSE [Concomitant]
     Dosage: UNK
     Route: 048
     Dates: start: 20070717
  5. URSO 250 [Concomitant]
     Dosage: UNK
     Route: 048
     Dates: start: 20070717
  6. AMLODIPINE [Concomitant]
     Dosage: UNK
     Route: 048
  7. LAFUTIDINE [Concomitant]
     Dosage: UNK
     Route: 048
     Dates: start: 20070406

REACTIONS (1)
  - MUSCLE SPASMS [None]
